FAERS Safety Report 5810770-3 (Version None)
Quarter: 2008Q3

REPORT INFORMATION
  Report Type: 
  Country: None (occurrence: None)
  Receive Date: 20080710
  Receipt Date: 20080630
  Transmission Date: 20090109
  Serious: Yes (Death, Hospitalization)
  Sender: FDA-Public Use
  Company Number: CLOF-1000188

PATIENT
  Age: 68 Year
  Sex: Female
  Weight: 83 kg

DRUGS (9)
  1. CLOLAR [Suspect]
     Indication: ACUTE LYMPHOCYTIC LEUKAEMIA
     Dosage: 40 MG/M2, QDX5, INTRAVENOUS
     Route: 042
     Dates: start: 20080508, end: 20080512
  2. CYTARABINE [Suspect]
     Indication: ACUTE LYMPHOCYTIC LEUKAEMIA
     Dosage: 1 G/M2, QDX5, INTRAVENOUS
     Route: 042
     Dates: start: 20080508, end: 20080512
  3. ACYCLOVIR [Concomitant]
  4. ATENOLOL [Concomitant]
  5. DIFLUCAN [Concomitant]
  6. CIPRO [Concomitant]
  7. ALLOPURINOL [Concomitant]
  8. MAGNESIUM SULFATE [Concomitant]
  9. CHLORHEXIDINE GLUCONATE [Concomitant]

REACTIONS (21)
  - ABDOMINAL PAIN [None]
  - AGITATION [None]
  - ARRHYTHMIA SUPRAVENTRICULAR [None]
  - ASPARTATE AMINOTRANSFERASE INCREASED [None]
  - CARDIOPULMONARY FAILURE [None]
  - DIARRHOEA [None]
  - DYSPNOEA [None]
  - HYPOALBUMINAEMIA [None]
  - HYPOKALAEMIA [None]
  - HYPONATRAEMIA [None]
  - HYPOTENSION [None]
  - MULTI-ORGAN FAILURE [None]
  - NO THERAPEUTIC RESPONSE [None]
  - NODAL ARRHYTHMIA [None]
  - OEDEMA PERIPHERAL [None]
  - PALMAR-PLANTAR ERYTHRODYSAESTHESIA SYNDROME [None]
  - RENAL FAILURE [None]
  - RENAL FAILURE ACUTE [None]
  - SEPTIC SHOCK [None]
  - SINUS TACHYCARDIA [None]
  - TRANSAMINASES INCREASED [None]
